FAERS Safety Report 5406801-5 (Version None)
Quarter: 2007Q3

REPORT INFORMATION
  Report Type: 
  Country: None (occurrence: None)
  Receive Date: 20070807
  Receipt Date: 20070806
  Transmission Date: 20080115
  Serious: Yes (Other)
  Sender: FDA-Public Use
  Company Number: US-BAYER-200711927BCC

PATIENT
  Age: 27 Year
  Sex: Female
  Weight: 82 kg

DRUGS (8)
  1. RID MOUSSE [Suspect]
     Indication: DRUG USE FOR UNKNOWN INDICATION
     Route: 061
     Dates: start: 20070614
  2. RID MOUSSE [Suspect]
     Route: 061
     Dates: start: 20070701
  3. RID EGG AND NIT COMB OUT GEL [Suspect]
     Indication: DRUG USE FOR UNKNOWN INDICATION
     Route: 061
     Dates: start: 20070614
  4. RID EGG AND NIT COMB OUT GEL [Suspect]
     Route: 061
     Dates: start: 20070701
  5. RID COMB [Suspect]
     Indication: DRUG USE FOR UNKNOWN INDICATION
     Dates: start: 20070701
  6. RID COMB [Suspect]
     Dates: start: 20070614
  7. RID SPRAY [Suspect]
     Indication: DRUG USE FOR UNKNOWN INDICATION
     Dates: start: 20070701
  8. PROZAC [Suspect]
     Indication: DRUG USE FOR UNKNOWN INDICATION
     Route: 048
     Dates: start: 20070516

REACTIONS (1)
  - URTICARIA [None]
